FAERS Safety Report 9894575 (Version 1)
Quarter: 2014Q1

REPORT INFORMATION
  Report Type: Spontaneous
  Country: US (occurrence: US)
  Receive Date: 20140213
  Receipt Date: 20140213
  Transmission Date: 20141002
  Serious: Yes (Death)
  Sender: FDA-Public Use
  Company Number: US-BANPHARM-20142113

PATIENT
  Age: 51 Year
  Sex: Male

DRUGS (6)
  1. VALPROIC ACID UNKNOWN PRODUCT [Suspect]
     Indication: PRODUCT USED FOR UNKNOWN INDICATION
     Route: 048
  2. HYDROXIZINE [Concomitant]
  3. OLANZAPINE [Concomitant]
  4. ZIPRASIDONE [Concomitant]
  5. LISINOPRIL [Concomitant]
  6. BENZODIAZEPINE RELATED DRUGS [Concomitant]

REACTIONS (2)
  - Death [Fatal]
  - Completed suicide [Fatal]
